FAERS Safety Report 19735481 (Version 1)
Quarter: 2021Q3

REPORT INFORMATION
  Report Type: Other
  Country: US (occurrence: US)
  Receive Date: 20210823
  Receipt Date: 20210823
  Transmission Date: 20211014
  Serious: Yes (Death, Other)
  Sender: FDA-Public Use
  Company Number: US-ROCHE-2893633

PATIENT

DRUGS (1)
  1. RITUXIMAB. [Suspect]
     Active Substance: RITUXIMAB
     Indication: HAIRY CELL LEUKAEMIA
     Route: 065

REACTIONS (11)
  - Hepatitis B [Unknown]
  - Pneumonia [Unknown]
  - Cellulitis [Unknown]
  - Diverticulitis [Unknown]
  - Herpes zoster [Unknown]
  - Pneumonia [Fatal]
  - Sinusitis [Unknown]
  - Septic shock [Fatal]
  - Wound infection [Unknown]
  - Erysipelas [Unknown]
  - Upper respiratory tract infection [Unknown]
